FAERS Safety Report 20941144 (Version 2)
Quarter: 2022Q2

REPORT INFORMATION
  Report Type: Spontaneous
  Country: CA (occurrence: CA)
  Receive Date: 20220609
  Receipt Date: 20220620
  Transmission Date: 20220721
  Serious: No
  Sender: FDA-Public Use
  Company Number: CA-LUPIN PHARMACEUTICALS INC.-2022-08303

PATIENT
  Age: 24 Year
  Sex: Female

DRUGS (3)
  1. CALCIUM ACETATE [Suspect]
     Active Substance: CALCIUM ACETATE
     Indication: Hypocalcaemia
     Dosage: UNK
     Route: 042
  2. CALCIUM ACETATE [Suspect]
     Active Substance: CALCIUM ACETATE
     Indication: Mineral supplementation
  3. CALCITRIOL [Suspect]
     Active Substance: CALCITRIOL
     Indication: Hypocalcaemia
     Dosage: UNK
     Route: 065

REACTIONS (2)
  - Maternal exposure during pregnancy [Unknown]
  - Maternal exposure during breast feeding [Unknown]
